FAERS Safety Report 9338613 (Version 1)
Quarter: 2013Q2

REPORT INFORMATION
  Report Type: Spontaneous
  Country: US (occurrence: None)
  Receive Date: 20130605
  Receipt Date: 20130605
  Transmission Date: 20140414
  Serious: Yes (Hospitalization, Disabling)
  Sender: FDA-Public Use
  Company Number: None

PATIENT
  Age: 31 None
  Sex: Male
  Weight: 79.38 kg

DRUGS (2)
  1. PROSCAR [Suspect]
     Indication: ALOPECIA
     Dosage: 1.25 DAILY PO FOR SEVERAL YEARS.
     Route: 048
  2. PROSCAR [Suspect]
     Indication: ANDROGENETIC ALOPECIA
     Dosage: 1.25 DAILY PO FOR SEVERAL YEARS.
     Route: 048

REACTIONS (12)
  - Erectile dysfunction [None]
  - Hormone level abnormal [None]
  - Mood swings [None]
  - Amnesia [None]
  - Feeling abnormal [None]
  - Disturbance in attention [None]
  - Depression [None]
  - Anxiety [None]
  - Panic attack [None]
  - Pollakiuria [None]
  - Dysuria [None]
  - Weight increased [None]
